FAERS Safety Report 7834489-2 (Version None)
Quarter: 2011Q4

REPORT INFORMATION
  Report Type: 
  Country: None (occurrence: None)
  Receive Date: 20111020
  Receipt Date: 20111004
  Transmission Date: 20120403
  Serious: Yes (Other)
  Sender: FDA-Public Use
  Company Number: 1000024182

PATIENT
  Age: 71 Year
  Sex: Male
  Weight: 79 kg

DRUGS (9)
  1. PROMETHAZIN (PROMETHAZINE HYDROCHLORIDE) (10 MILLIGRAM) (PROMETHAZINE [Concomitant]
  2. BRONCHRETARD (THEOPHYLLINE) (350 MICROGRAM) (THEOPHYLLINE) [Concomitant]
  3. MCP (METOCLOPRAMIDE) (100 MILLILITRE(S)) (METOCLOPRAMIDE) [Concomitant]
  4. ASS RATIO (ASPIRIN, VITAMIN C) (100 MILLIGRAM) (ASPIRIN, VITAMIN C) [Concomitant]
  5. PANTOPRAZOL (PANTOPRAZOLE) (40 MILLIGRAM) (PANTOPRAZOLE) [Concomitant]
  6. HCT BETA (HYDROCHLOROTHIAZIDE) (25 MILLIGRAM) (HYDROCHLOROTHIAZIDE) [Concomitant]
  7. ROFLUMILAST (ROFLUMILAST) (500 MICROGRAM, TABLETS) [Suspect]
     Indication: ASTHMA
     Dosage: 1 TABLETS (1 DOSAGE FORMS,1 IN 1 D),ORAL
     Route: 048
     Dates: start: 20110213, end: 20110617
  8. DELIX (RAMIPRIL) (5 MILLIGRAM) (RAMIPRIL) [Concomitant]
  9. RAMIPRIL/HYDROCHLOROTHIAZIDE (RAMIPRIL, HYDROCHLOROTHIAZIDE) (RAMIPRIL [Concomitant]

REACTIONS (8)
  - OFF LABEL USE [None]
  - NAUSEA [None]
  - CONDITION AGGRAVATED [None]
  - RESPIRATORY DISORDER [None]
  - FEELING ABNORMAL [None]
  - AGGRESSION [None]
  - FATIGUE [None]
  - APATHY [None]
